FAERS Safety Report 13582991 (Version 2)
Quarter: 2017Q2

REPORT INFORMATION
  Report Type: Other
  Country: TR (occurrence: TR)
  Receive Date: 20170525
  Receipt Date: 20170531
  Transmission Date: 20170830
  Serious: Yes (Other)
  Sender: FDA-Public Use
  Company Number: TR-ACTELION-A-US2017-154359

PATIENT
  Sex: Female
  Weight: .96 kg

DRUGS (6)
  1. VENTAVIS [Suspect]
     Active Substance: ILOPROST
     Dosage: 0.5 MCG, SINGLE
     Route: 007
  2. SILDENAFIL. [Concomitant]
     Active Substance: SILDENAFIL
  3. MAGNESIUM SULFATE. [Concomitant]
     Active Substance: MAGNESIUM SULFATE
  4. VENTAVIS [Suspect]
     Active Substance: ILOPROST
     Indication: PULMONARY HYPERTENSION
     Dosage: UNK
     Route: 055
  5. VENTAVIS [Suspect]
     Active Substance: ILOPROST
     Dosage: 1.5 MCG, SINGLE
     Route: 007
  6. VENTAVIS [Suspect]
     Active Substance: ILOPROST
     Dosage: 1 MCG, SINGLE
     Route: 007

REACTIONS (5)
  - Bradycardia [Unknown]
  - Drug administered to patient of inappropriate age [Unknown]
  - Incorrect route of drug administration [Unknown]
  - Blood pressure decreased [Unknown]
  - Off label use [Unknown]
